FAERS Safety Report 13617860 (Version 1)
Quarter: 2017Q2

REPORT INFORMATION
  Report Type: Spontaneous
  Country: US (occurrence: US)
  Receive Date: 20170606
  Receipt Date: 20170606
  Transmission Date: 20170830
  Serious: No
  Sender: FDA-Public Use
  Company Number: US-TARO-2017TAR00001

PATIENT
  Sex: Female

DRUGS (1)
  1. FEVERALL [Suspect]
     Active Substance: ACETAMINOPHEN

REACTIONS (2)
  - Accidental underdose [Unknown]
  - Drug ineffective [Not Recovered/Not Resolved]

NARRATIVE: CASE EVENT DATE: 20170102
